FAERS Safety Report 25206764 (Version 2)
Quarter: 2025Q3

REPORT INFORMATION
  Report Type: Spontaneous
  Country: EU (occurrence: EU)
  Receive Date: 20250417
  Receipt Date: 20250801
  Transmission Date: 20251021
  Serious: Yes (Death, Other)
  Sender: ASTELLAS
  Company Number: EU-ASTELLAS-2025-AER-020410

PATIENT
  Age: 73 Year
  Sex: Female

DRUGS (7)
  1. GILTERITINIB [Suspect]
     Active Substance: GILTERITINIB
     Indication: FLT3 gene mutation
     Route: 065
     Dates: start: 202112, end: 2022
  2. GILTERITINIB [Suspect]
     Active Substance: GILTERITINIB
     Indication: Acute myeloid leukaemia recurrent
     Route: 065
     Dates: start: 202204, end: 202306
  3. GILTERITINIB [Suspect]
     Active Substance: GILTERITINIB
     Indication: Acute myeloid leukaemia refractory
  4. FLUDARABINE;TREOSULFAN [Concomitant]
     Indication: Product used for unknown indication
     Route: 065
  5. CYCLOSPORINE [Concomitant]
     Active Substance: CYCLOSPORINE
     Indication: Immunosuppression
     Route: 065
  6. MYCOPHENOLATE MOFETIL [Concomitant]
     Active Substance: MYCOPHENOLATE MOFETIL
     Indication: Immunosuppression
     Route: 065
  7. ATG-FRESENIUS [Concomitant]
     Active Substance: LAPINE T-LYMPHOCYTE IMMUNE GLOBULIN
     Indication: Immunosuppression
     Route: 065

REACTIONS (12)
  - Chronic graft versus host disease [Fatal]
  - Bacterial infection [Fatal]
  - Cytomegalovirus colitis [Fatal]
  - Escherichia sepsis [Unknown]
  - Fungal oesophagitis [Unknown]
  - Klebsiella sepsis [Unknown]
  - Cytomegalovirus infection reactivation [Unknown]
  - Chronic graft versus host disease in intestine [Unknown]
  - Cytopenia [Not Recovered/Not Resolved]
  - Full blood count abnormal [Unknown]
  - Condition aggravated [Unknown]
  - General physical health deterioration [Unknown]

NARRATIVE: CASE EVENT DATE: 20220101
